FAERS Safety Report 5885616-8 (Version None)
Quarter: 2008Q3

REPORT INFORMATION
  Report Type: 
  Country: None (occurrence: None)
  Receive Date: 20080912
  Receipt Date: 20080729
  Transmission Date: 20090109
  Serious: Yes (Hospitalization)
  Sender: FDA-Public Use
  Company Number: 2008AL009112

PATIENT
  Age: 50 Year
  Sex: Male

DRUGS (13)
  1. DIAZEPAM [Suspect]
     Indication: SEDATIVE THERAPY
     Dosage: 2 MG; PO
     Route: 048
     Dates: start: 20041001, end: 20050301
  2. LAMOTRIGINE [Concomitant]
  3. TRUXAL [Concomitant]
  4. CLONAZEPAM [Concomitant]
  5. OXAZEPAM [Concomitant]
  6. SEROQUEL [Concomitant]
  7. SIMVASTATIN [Concomitant]
  8. RAMIPRIL [Concomitant]
  9. PROPRANOLOL [Concomitant]
  10. LANSOPRAZOLE [Concomitant]
  11. TERAZOSIN HCL [Concomitant]
  12. BUDESONIDE [Concomitant]
  13. METFORMIN HCL [Concomitant]

REACTIONS (11)
  - AGGRESSION [None]
  - ANXIETY [None]
  - DRUG INEFFECTIVE [None]
  - DRY MOUTH [None]
  - FATIGUE [None]
  - FEELING ABNORMAL [None]
  - INCREASED APPETITE [None]
  - MENTAL DISORDER [None]
  - OEDEMA PERIPHERAL [None]
  - PERSONALITY CHANGE [None]
  - SOMNOLENCE [None]
